FAERS Safety Report 8388851-2 (Version None)
Quarter: 2012Q2

REPORT INFORMATION
  Report Type: 
  Country: None (occurrence: None)
  Receive Date: 20120528
  Receipt Date: 20120516
  Transmission Date: 20120825
  Serious: Yes (Hospitalization)
  Sender: FDA-Public Use
  Company Number: US-BIOGENIDEC-2011BI031257

PATIENT
  Sex: Female

DRUGS (2)
  1. AVONEX [Suspect]
     Indication: MULTIPLE SCLEROSIS
     Route: 030
     Dates: start: 19970101, end: 20010707
  2. AVONEX [Suspect]
     Route: 030
     Dates: start: 20030801, end: 20050201

REACTIONS (3)
  - HEPATIC CIRRHOSIS [None]
  - LIVER INDURATION [None]
  - HEADACHE [None]
